FAERS Safety Report 9166989 (Version 6)
Quarter: 2014Q1

REPORT INFORMATION
  Report Type: Report from Study
  Country: CA (occurrence: CA)
  Receive Date: 20130317
  Receipt Date: 20140306
  Transmission Date: 20141002
  Serious: Yes (Hospitalization, Other)
  Sender: FDA-Public Use
  Company Number: CA-UCBSA-080638

PATIENT
  Age: 69 Year
  Sex: Female

DRUGS (21)
  1. CIMZIA [Suspect]
     Indication: RHEUMATOID ARTHRITIS
     Route: 058
     Dates: start: 201306
  2. CIMZIA [Suspect]
     Indication: RHEUMATOID ARTHRITIS
     Route: 058
     Dates: start: 20120427, end: 201212
  3. CIMZIA [Suspect]
     Indication: RHEUMATOID ARTHRITIS
     Route: 058
     Dates: start: 20120228, end: 20120328
  4. PREDNISOLONE [Concomitant]
     Indication: RHEUMATOID ARTHRITIS
     Dosage: DAILY DOSE:2.5 MG
     Route: 048
  5. FOLIC ACID [Concomitant]
     Indication: VITAMIN SUPPLEMENTATION
     Route: 048
  6. FERROUS GLUCONATE [Concomitant]
     Indication: MINERAL SUPPLEMENTATION
     Route: 048
  7. MTX [Concomitant]
     Indication: RHEUMATOID ARTHRITIS
     Route: 058
     Dates: start: 20091117, end: 20130523
  8. MTX [Concomitant]
     Indication: RHEUMATOID ARTHRITIS
     Route: 058
     Dates: start: 201005, end: 201212
  9. LOSEC [Concomitant]
     Indication: GASTROOESOPHAGEAL REFLUX DISEASE
     Dosage: DAILY DOSE: 20 MG
     Route: 048
  10. GABAPENTIN [Concomitant]
     Indication: EPILEPSY
     Route: 048
  11. GABAPENTIN [Concomitant]
     Indication: NEURALGIA
     Route: 048
  12. HCTZ [Concomitant]
     Indication: HYPERTENSION
     Route: 048
  13. CRESTOR [Concomitant]
     Indication: LOW DENSITY LIPOPROTEIN INCREASED
     Route: 048
  14. MICARDIS [Concomitant]
     Indication: HYPERTENSION
     Route: 048
  15. PERCOCET [Concomitant]
     Indication: PAIN
     Dosage: 5/325 MG, BID/PRN
     Route: 048
  16. PREDNISONE [Concomitant]
     Indication: RHEUMATOID ARTHRITIS
     Dosage: DAILY DOSE: 2.5 MG
     Route: 048
     Dates: start: 200903
  17. CALCIUM [Concomitant]
  18. ACTOMOL [Concomitant]
  19. VITAMIN D [Concomitant]
     Dosage: 1000 IU/D
  20. DOMPERIDONE [Concomitant]
  21. VENTOLIN [Concomitant]

REACTIONS (4)
  - Pericardial effusion [Recovered/Resolved]
  - Pneumonitis [Not Recovered/Not Resolved]
  - Pulmonary fibrosis [Recovering/Resolving]
  - Pneumonia [Recovered/Resolved]
